FAERS Safety Report 25946372 (Version 1)
Quarter: 2025Q4

REPORT INFORMATION
  Report Type: Spontaneous
  Country: CA (occurrence: CA)
  Receive Date: 20251022
  Receipt Date: 20251022
  Transmission Date: 20260117
  Serious: Yes (Other)
  Sender: SANDOZ
  Company Number: CA-SANDOZ-SDZ2025CA077134

PATIENT
  Age: 51 Year
  Sex: Male

DRUGS (10)
  1. AMOXICILLIN\CLAVULANATE POTASSIUM [Suspect]
     Active Substance: AMOXICILLIN\CLAVULANATE POTASSIUM
     Indication: Product used for unknown indication
     Dosage: UNK
     Route: 065
  2. REMICADE [Suspect]
     Active Substance: INFLIXIMAB
     Dosage: 450 MG, Q4W
     Route: 041
  3. REMICADE [Suspect]
     Active Substance: INFLIXIMAB
     Indication: Ankylosing spondylitis
     Dosage: 450 MG
     Route: 041
  4. REMICADE [Suspect]
     Active Substance: INFLIXIMAB
     Dosage: 500 MG
     Route: 041
  5. REMICADE [Suspect]
     Active Substance: INFLIXIMAB
     Dosage: 500 MG
     Route: 041
  6. REMICADE [Suspect]
     Active Substance: INFLIXIMAB
     Indication: Ankylosing spondylitis
     Dosage: 500 MG, 1 EVERY 6 WEEKS
     Route: 041
  7. REMICADE [Suspect]
     Active Substance: INFLIXIMAB
     Dosage: 500 MG, 1 EVERY 6 WEEKS
     Route: 041
  8. REMICADE [Suspect]
     Active Substance: INFLIXIMAB
     Dosage: 500 MG, 1 EVERY 6 WEEKS
     Route: 041
  9. REMICADE [Suspect]
     Active Substance: INFLIXIMAB
     Dosage: 500 MG, 1 EVERY 6 WEEKS
     Route: 041
  10. REMICADE [Suspect]
     Active Substance: INFLIXIMAB
     Dosage: 500 MG, 1 EVERY 6 WEEKS
     Route: 041

REACTIONS (8)
  - Ankylosing spondylitis [Not Recovered/Not Resolved]
  - Epstein-Barr virus infection [Not Recovered/Not Resolved]
  - Influenza [Not Recovered/Not Resolved]
  - Nasopharyngitis [Not Recovered/Not Resolved]
  - Pharyngitis streptococcal [Not Recovered/Not Resolved]
  - Sinusitis [Not Recovered/Not Resolved]
  - Product dose omission issue [Not Recovered/Not Resolved]
  - Off label use [Not Recovered/Not Resolved]
